FAERS Safety Report 7186881-X (Version None)
Quarter: 2010Q4

REPORT INFORMATION
  Report Type: 
  Country: None (occurrence: None)
  Receive Date: 20101222
  Receipt Date: 20100628
  Transmission Date: 20110411
  Serious: No
  Sender: FDA-Public Use
  Company Number: US-AMGEN-KDL420829

PATIENT

DRUGS (12)
  1. ENBREL [Suspect]
     Indication: PRODUCT USED FOR UNKNOWN INDICATION
     Dosage: 50 MG, QWK
     Route: 058
  2. GLUCOSAMINE [Concomitant]
     Dosage: 167 MG, UNK
  3. ASCORBIC ACID [Concomitant]
     Dosage: 100 MG, UNK
  4. FOLIC ACID [Concomitant]
     Dosage: 5 MG, UNK
  5. MULTIPLE VITAMINS [Concomitant]
     Dosage: UNK UNK, UNK
  6. FISH OIL [Concomitant]
     Dosage: UNK UNK, UNK
  7. ERGOCALCIFEROL [Concomitant]
     Dosage: 400 IU, UNK
  8. WARFARIN [Concomitant]
     Dosage: 1 MG, UNK
  9. DIGOXIN [Concomitant]
     Dosage: .25 MG, UNK
  10. SIMVASTATIN [Concomitant]
     Dosage: 5 MG, UNK
  11. ENALAPRIL MALEATE [Concomitant]
     Dosage: 2.5 MG, UNK
  12. METHOTREXATE [Concomitant]
     Dosage: 2.5 MG, UNK

REACTIONS (1)
  - ABDOMINAL PAIN [None]
